FAERS Safety Report 17368842 (Version 2)
Quarter: 2020Q1

REPORT INFORMATION
  Report Type: Spontaneous
  Country: US (occurrence: US)
  Receive Date: 20200204
  Receipt Date: 20200208
  Transmission Date: 20200409
  Serious: No
  Sender: FDA-Public Use
  Company Number: US-TEVA-2020-US-1177566

PATIENT
  Sex: Female

DRUGS (1)
  1. BUPRENORPHINE HYDROCHLORIDE. [Suspect]
     Active Substance: BUPRENORPHINE HYDROCHLORIDE
     Dosage: 15 MCG / HR
     Route: 062

REACTIONS (6)
  - Application site discomfort [Recovered/Resolved]
  - Product adhesion issue [Unknown]
  - Application site burn [Unknown]
  - Treatment failure [Unknown]
  - Application site erythema [Unknown]
  - Application site pain [Recovered/Resolved]
